FAERS Safety Report 11353947 (Version 1)
Quarter: 2015Q3

REPORT INFORMATION
  Report Type: Spontaneous
  Country: US (occurrence: US)
  Receive Date: 20150807
  Receipt Date: 20150807
  Transmission Date: 20151125
  Serious: No
  Sender: FDA-Public Use
  Company Number: US-JNJFOC-20150510703

PATIENT
  Age: 75 Year
  Sex: Female
  Weight: 77.57 kg

DRUGS (2)
  1. WOMENS ROGAINE [Suspect]
     Active Substance: MINOXIDIL
     Indication: ALOPECIA
     Dosage: A LITTLE LESS THAN 1/2 CAP, 2 WEEKS USAGE, 1 TIME PER DAY
     Route: 061
     Dates: end: 20150513
  2. WOMENS ROGAINE [Suspect]
     Active Substance: MINOXIDIL
     Route: 061

REACTIONS (4)
  - Wrong technique in product usage process [Unknown]
  - Product formulation issue [Unknown]
  - Off label use [Unknown]
  - Incorrect dose administered [Unknown]
